FAERS Safety Report 9563768 (Version 1)
Quarter: 2013Q3

REPORT INFORMATION
  Report Type: Spontaneous
  Country: US (occurrence: None)
  Receive Date: 20130926
  Receipt Date: 20130926
  Transmission Date: 20140515
  Serious: No
  Sender: FDA-Public Use
  Company Number: None

PATIENT
  Age: 84 Year
  Sex: Female
  Weight: 38.1 kg

DRUGS (1)
  1. BUDESONIDE [Suspect]
     Indication: COLITIS ULCERATIVE
     Route: 048
     Dates: start: 20130910, end: 20130920

REACTIONS (9)
  - Dry mouth [None]
  - Insomnia [None]
  - Abdominal pain [None]
  - Proctalgia [None]
  - Rectal discharge [None]
  - Diarrhoea [None]
  - Nervousness [None]
  - Fatigue [None]
  - Decreased appetite [None]
